FAERS Safety Report 20873414 (Version 1)
Quarter: 2022Q2

REPORT INFORMATION
  Report Type: Report from Study
  Country: US (occurrence: US)
  Receive Date: 20220525
  Receipt Date: 20220525
  Transmission Date: 20220721
  Serious: Yes (Other)
  Sender: FDA-Public Use
  Company Number: US-PFIZER INC-202200739275

PATIENT
  Age: 56 Year
  Sex: Female
  Weight: 85.3 kg

DRUGS (6)
  1. SILDENAFIL CITRATE [Suspect]
     Active Substance: SILDENAFIL CITRATE
     Indication: Pulmonary hypertension
     Dosage: UNK
     Dates: start: 2022, end: 2022
  2. TADALAFIL [Suspect]
     Active Substance: TADALAFIL
     Indication: Product used for unknown indication
     Dosage: UNK
     Dates: start: 20220411
  3. TYVASO [Suspect]
     Active Substance: TREPROSTINIL
     Indication: Pulmonary arterial hypertension
     Dosage: 18-72 UG (3-12 BREATHS), FOUR TIMES A DAY (QID) VIA INHALATION
     Dates: start: 202204
  4. TYVASO [Suspect]
     Active Substance: TREPROSTINIL
     Dosage: UNK, 3X/DAY (TID, INHALATION)
     Dates: start: 202204
  5. TYVASO [Suspect]
     Active Substance: TREPROSTINIL
     Dosage: 12 UG, 2X/DAY (INHALATION)
  6. OPSUMIT [Concomitant]
     Active Substance: MACITENTAN
     Dosage: UNK

REACTIONS (15)
  - Hypotension [Unknown]
  - Syncope [Unknown]
  - Dyspnoea at rest [Unknown]
  - Ascites [Unknown]
  - Sinus disorder [Unknown]
  - Pruritus [Unknown]
  - Throat tightness [Unknown]
  - Seasonal allergy [Unknown]
  - Exercise tolerance decreased [Unknown]
  - Dyspnoea exertional [Unknown]
  - Oedema [Unknown]
  - Fatigue [Unknown]
  - Headache [Unknown]
  - Throat irritation [Unknown]
  - Cough [Unknown]

NARRATIVE: CASE EVENT DATE: 20220401
